FAERS Safety Report 12670830 (Version 1)
Quarter: 2016Q3

REPORT INFORMATION
  Report Type: Spontaneous
  Country: US (occurrence: US)
  Receive Date: 20160822
  Receipt Date: 20160822
  Transmission Date: 20161109
  Serious: No
  Sender: FDA-Public Use
  Company Number: US-JAZZ-2016-US-006222

PATIENT
  Sex: Female

DRUGS (26)
  1. XYREM [Suspect]
     Active Substance: SODIUM OXYBATE
     Dosage: DOSE ADJUSTMENTS
     Route: 048
     Dates: start: 2015, end: 2015
  2. COMPAZINE [Concomitant]
     Active Substance: PROCHLORPERAZINE MALEATE
  3. HYDROCHLOROTHIAZIDE. [Concomitant]
     Active Substance: HYDROCHLOROTHIAZIDE
  4. NEUPRO [Concomitant]
     Active Substance: ROTIGOTINE
  5. FENOFIBRATE. [Concomitant]
     Active Substance: FENOFIBRATE
  6. SUMATRIPTAN SUCCINATE. [Concomitant]
     Active Substance: SUMATRIPTAN SUCCINATE
  7. DICLOFENAC POT [Concomitant]
  8. TRAMADOL HCL [Concomitant]
     Active Substance: TRAMADOL HYDROCHLORIDE
  9. ADVIL COLD AND SINUS [Concomitant]
     Active Substance: IBUPROFEN\PSEUDOEPHEDRINE HYDROCHLORIDE
  10. DEXILANT DR [Concomitant]
  11. TOPAMAX [Concomitant]
     Active Substance: TOPIRAMATE
  12. OLUX [Concomitant]
     Active Substance: CLOBETASOL PROPIONATE
  13. SYMBICORT [Concomitant]
     Active Substance: BUDESONIDE\FORMOTEROL FUMARATE DIHYDRATE
  14. LOSARTAN POTASSIUM. [Concomitant]
     Active Substance: LOSARTAN POTASSIUM
  15. XYREM [Suspect]
     Active Substance: SODIUM OXYBATE
     Dosage: 4.5 G, BID
     Route: 048
     Dates: start: 201505
  16. XYREM [Suspect]
     Active Substance: SODIUM OXYBATE
     Indication: NARCOLEPSY
     Dosage: 2.25 G, BID
     Route: 048
     Dates: start: 201501, end: 201501
  17. FISH OIL [Concomitant]
     Active Substance: FISH OIL
  18. METADATE CD [Concomitant]
     Active Substance: METHYLPHENIDATE HYDROCHLORIDE
  19. MOTRIN IB [Concomitant]
     Active Substance: IBUPROFEN
  20. PROVIGIL [Concomitant]
     Active Substance: MODAFINIL
  21. FLEXERIL [Concomitant]
     Active Substance: CYCLOBENZAPRINE HYDROCHLORIDE
  22. PLAQUENIL [Concomitant]
     Active Substance: HYDROXYCHLOROQUINE SULFATE
  23. GABAPENTIN. [Concomitant]
     Active Substance: GABAPENTIN
  24. ADDERALL XR [Concomitant]
     Active Substance: AMPHETAMINE ASPARTATE\AMPHETAMINE SULFATE\DEXTROAMPHETAMINE SACCHARATE\DEXTROAMPHETAMINE SULFATE
  25. CATAFLAM [Concomitant]
     Active Substance: DICLOFENAC POTASSIUM
  26. ROBITUSSIN LONG-ACTING [Concomitant]

REACTIONS (3)
  - Abdominal pain upper [Unknown]
  - Nephrolithiasis [Not Recovered/Not Resolved]
  - Migraine [Unknown]
